FAERS Safety Report 4792892-1 (Version None)
Quarter: 2005Q4

REPORT INFORMATION
  Report Type: 
  Country: None (occurrence: None)
  Receive Date: 20051010
  Receipt Date: 20050302
  Transmission Date: 20060501
  Serious: Yes (Hospitalization)
  Sender: FDA-Public Use
  Company Number: GB-BRISTOL-MYERS SQUIBB COMPANY-12893533

PATIENT
  Age: 34 Year
  Sex: Female

DRUGS (3)
  1. CETUXIMAB [Suspect]
     Indication: NON-SMALL CELL LUNG CANCER
     Dosage: 21-FEB-05 (MOST RECENT INFUSION). 2ND INFUSION THUS FAR
     Route: 041
     Dates: start: 20050214, end: 20050221
  2. CISPLATIN [Suspect]
     Indication: NON-SMALL CELL LUNG CANCER
     Dosage: 14-FEB-05 (MOST RECENT INFUSION). 1ST INFUSION THUS FAR.
     Route: 042
     Dates: start: 20050214, end: 20050214
  3. VINORELBINE TARTRATE [Suspect]
     Indication: NON-SMALL CELL LUNG CANCER
     Dosage: 21-FEB-05 (MOST RECENT INFUSION). 2ND INFUSION THUS FAR
     Route: 042
     Dates: start: 20050214, end: 20050221

REACTIONS (2)
  - DISEASE PROGRESSION [None]
  - NEUTROPENIC SEPSIS [None]
